FAERS Safety Report 13338576 (Version 1)
Quarter: 2017Q1

REPORT INFORMATION
  Report Type: Report from Study
  Country: KR (occurrence: KR)
  Receive Date: 20170315
  Receipt Date: 20170315
  Transmission Date: 20170428
  Serious: Yes (Hospitalization)
  Sender: FDA-Public Use
  Company Number: KR-EISAI MEDICAL RESEARCH-EC-2017-025736

PATIENT
  Age: 57 Year
  Sex: Female
  Weight: 52.5 kg

DRUGS (3)
  1. HALAVEN [Suspect]
     Active Substance: ERIBULIN MESYLATE
     Indication: BREAST CANCER
     Route: 041
     Dates: start: 20150901, end: 20150930
  2. OCORON [Concomitant]
  3. TARGIN [Concomitant]
     Active Substance: NALOXONE HYDROCHLORIDE\OXYCODONE HYDROCHLORIDE

REACTIONS (2)
  - Neutrophil count decreased [Recovered/Resolved]
  - Lymphoedema [Recovered/Resolved with Sequelae]

NARRATIVE: CASE EVENT DATE: 20150910
